FAERS Safety Report 7023016-8 (Version None)
Quarter: 2010Q3

REPORT INFORMATION
  Report Type: 
  Country: None (occurrence: None)
  Receive Date: 20100930
  Receipt Date: 20100322
  Transmission Date: 20110219
  Serious: Yes (Hospitalization, Other)
  Sender: FDA-Public Use
  Company Number: US-BAYER-200943866NA

PATIENT
  Age: 39 Year
  Sex: Female
  Weight: 100 kg

DRUGS (4)
  1. OCELLA [Suspect]
     Indication: CONTRACEPTION
     Dates: start: 20090221, end: 20090301
  2. YASMIN [Suspect]
     Dates: end: 20090326
  3. MULTI-VITAMIN [Concomitant]
  4. KIRKLAND SLEEP AID [Concomitant]

REACTIONS (9)
  - DEEP VEIN THROMBOSIS [None]
  - DYSPNOEA EXERTIONAL [None]
  - FATIGUE [None]
  - PAIN IN EXTREMITY [None]
  - PULMONARY EMBOLISM [None]
  - RIGHT VENTRICULAR FAILURE [None]
  - SENSATION OF HEAVINESS [None]
  - TACHYCARDIA [None]
  - VENTRICULAR DYSKINESIA [None]
